FAERS Safety Report 9096829 (Version 1)
Quarter: 2013Q1

REPORT INFORMATION
  Report Type: Spontaneous
  Country: US (occurrence: None)
  Receive Date: 20130125
  Receipt Date: 20130125
  Transmission Date: 20140127
  Serious: Yes (Other)
  Sender: FDA-Public Use
  Company Number: AUR-APL-2013-00853

PATIENT
  Age: 33 Year
  Sex: Male
  Weight: 81.63 kg

DRUGS (4)
  1. PAROXETINE (PAROXETINE) [Suspect]
     Indication: ANXIETY
  2. PAROXETINE (PAROXETINE) [Suspect]
     Indication: DEPRESSION
  3. CLONAZEPAM (CLONAZEPAM) [Concomitant]
  4. REMERON (MIRTAZAPINE) [Concomitant]

REACTIONS (2)
  - Coeliac disease [None]
  - Fatigue [None]
